FAERS Safety Report 9135399 (Version 1)
Quarter: 2013Q1

REPORT INFORMATION
  Report Type: Spontaneous
  Country: US (occurrence: US)
  Receive Date: 20130304
  Receipt Date: 20130304
  Transmission Date: 20140127
  Serious: No
  Sender: FDA-Public Use
  Company Number: US-ENDO PHARMACEUTICALS INC.-ENDC20110155

PATIENT
  Age: 54 Year
  Sex: Male

DRUGS (3)
  1. ENDOCET [Suspect]
     Indication: BACK PAIN
     Dosage: 30/975 MG
     Route: 048
     Dates: start: 2011
  2. ALPRAZOLAM [Concomitant]
     Indication: POST-TRAUMATIC STRESS DISORDER
     Dosage: UNKNOWN
     Route: 048
  3. LUVOX [Concomitant]
     Indication: POST-TRAUMATIC STRESS DISORDER
     Dosage: UNKNOWN
     Route: 065

REACTIONS (6)
  - Nasopharyngitis [Not Recovered/Not Resolved]
  - Decreased appetite [Not Recovered/Not Resolved]
  - Diarrhoea [Not Recovered/Not Resolved]
  - Nausea [Not Recovered/Not Resolved]
  - Vomiting [Not Recovered/Not Resolved]
  - Hepatic enzyme increased [Not Recovered/Not Resolved]
